FAERS Safety Report 9825848 (Version 1)
Quarter: 2013Q4

REPORT INFORMATION
  Report Type: Spontaneous
  Country: US (occurrence: None)
  Receive Date: 20131223
  Receipt Date: 20131223
  Transmission Date: 20140711
  Serious: Yes (Other)
  Sender: FDA-Public Use
  Company Number: 217937LEO

PATIENT
  Age: 77 Year
  Sex: Female

DRUGS (6)
  1. PICATO [Suspect]
     Indication: ACTINIC KERATOSIS
     Dosage: 1 IN 1 D
     Dates: start: 20120601, end: 20120603
  2. PICATO [Suspect]
     Indication: ACTINIC KERATOSIS
     Dosage: 1 IN 1 D
     Dates: start: 20120601, end: 20120603
  3. SINGULAIR (MONTELUKAST) 10MG [Concomitant]
  4. LUNESTA (ESZOPICLONE) [Concomitant]
  5. LEVOTHYROXINE (LEVOTHYROXINE) [Concomitant]
  6. ENALAPRIL (ENALAPRIL) [Concomitant]

REACTIONS (4)
  - Application site pain [None]
  - Application site burn [None]
  - Off label use [None]
  - Drug administered at inappropriate site [None]
